FAERS Safety Report 14437808 (Version 1)
Quarter: 2018Q1

REPORT INFORMATION
  Report Type: Spontaneous
  Country: US (occurrence: US)
  Receive Date: 20180125
  Receipt Date: 20180125
  Transmission Date: 20180509
  Serious: Yes (Hospitalization)
  Sender: FDA-Public Use
  Company Number: US-PERRIGO-18US000401

PATIENT
  Age: 64 Year
  Sex: Male

DRUGS (2)
  1. QUININE [Suspect]
     Active Substance: QUININE
     Indication: BABESIOSIS
     Dosage: UNK
     Route: 065
  2. CLINDAMYCIN PALMITATE HYDROCHLORIDE. [Suspect]
     Active Substance: CLINDAMYCIN PALMITATE HYDROCHLORIDE
     Indication: BABESIOSIS
     Dosage: UNK
     Route: 065

REACTIONS (2)
  - Atrioventricular block [Recovered/Resolved]
  - Bradycardia [Recovered/Resolved]
